FAERS Safety Report 10204773 (Version 1)
Quarter: 2014Q2

REPORT INFORMATION
  Report Type: Spontaneous
  Country: BR (occurrence: BR)
  Receive Date: 20140529
  Receipt Date: 20140529
  Transmission Date: 20141212
  Serious: Yes (Hospitalization)
  Sender: FDA-Public Use
  Company Number: BR-ELI_LILLY_AND_COMPANY-BR201405007918

PATIENT
  Sex: Female

DRUGS (9)
  1. HUMALOG [Suspect]
     Indication: TYPE 2 DIABETES MELLITUS
     Dosage: 12 IU, EACH MORNING
     Route: 058
  2. HUMALOG [Suspect]
     Dosage: 12 IU, EACH EVENING
     Route: 058
     Dates: start: 1996
  3. METFORMIN [Concomitant]
     Indication: TYPE 2 DIABETES MELLITUS
     Dosage: UNK, UNKNOWN
     Route: 065
  4. IVABRADINE [Concomitant]
     Dosage: UNK, UNKNOWN
     Route: 065
  5. BENERVA [Concomitant]
     Dosage: UNK, UNKNOWN
     Route: 065
  6. PURAN T4 [Concomitant]
     Indication: HYPOTHYROIDISM
     Dosage: UNK, UNKNOWN
     Route: 065
  7. TIAMINA [Concomitant]
     Dosage: UNK, UNKNOWN
     Route: 065
  8. ISOSORBIDE MONONITRATE [Concomitant]
     Dosage: UNK, UNKNOWN
     Route: 065
  9. LANTUS [Concomitant]
     Dosage: UNK, UNKNOWN
     Route: 065

REACTIONS (3)
  - Renal disorder [Unknown]
  - Swelling [Unknown]
  - Blood glucose abnormal [Recovered/Resolved]
